FAERS Safety Report 12191371 (Version 1)
Quarter: 2016Q1

REPORT INFORMATION
  Report Type: Spontaneous
  Country: FR (occurrence: FR)
  Receive Date: 20160318
  Receipt Date: 20160318
  Transmission Date: 20160526
  Serious: Yes (Death, Congenital Anomaly, Other)
  Sender: FDA-Public Use
  Company Number: FR-PFIZER INC-2016156893

PATIENT

DRUGS (1)
  1. DOSTINEX [Suspect]
     Active Substance: CABERGOLINE
     Indication: HYPERPROLACTINAEMIA
     Dosage: 0.5 MG, WEEKLY
     Route: 064
     Dates: start: 201302

REACTIONS (2)
  - Maternal exposure during pregnancy [Fatal]
  - Trisomy 13 [Fatal]

NARRATIVE: CASE EVENT DATE: 20151205
